FAERS Safety Report 5058978-1 (Version None)
Quarter: 2006Q2

REPORT INFORMATION
  Report Type: 
  Country: None (occurrence: None)
  Receive Date: 20060629
  Receipt Date: 20060227
  Transmission Date: 20061013
  Serious: No
  Sender: FDA-Public Use
  Company Number: PHEH2006US02690

PATIENT
  Sex: Male

DRUGS (6)
  1. ENABLEX [Suspect]
     Indication: HYPERTONIC BLADDER
     Dosage: 7.5 MG, QD
     Dates: start: 20060101
  2. ZANTAC [Concomitant]
  3. ACIPHEX [Concomitant]
  4. TOPROL-XL [Concomitant]
  5. NORVASC (AMLODIPINE BELILATE) [Concomitant]
  6. WELLBUTRIN [Concomitant]

REACTIONS (1)
  - DIARRHOEA [None]
